FAERS Safety Report 6855214-8 (Version None)
Quarter: 2010Q3

REPORT INFORMATION
  Report Type: 
  Country: None (occurrence: None)
  Receive Date: 20100718
  Receipt Date: 20100708
  Transmission Date: 20110219
  Serious: Yes (Disabling, Other)
  Sender: FDA-Public Use
  Company Number: GB-BRISTOL-MYERS SQUIBB COMPANY-15179286

PATIENT
  Age: 75 Year
  Sex: Female

DRUGS (3)
  1. MITOMYCIN [Suspect]
     Indication: BLADDER CANCER
     Dosage: FORMULATION:INJECTION
     Route: 040
     Dates: start: 20091201, end: 20100101
  2. ASPIRIN [Concomitant]
     Route: 048
     Dates: start: 20030321
  3. LEVOTHYROXINE SODIUM [Concomitant]
     Route: 048
     Dates: start: 20061018

REACTIONS (3)
  - AUTOIMMUNE HEPATITIS [None]
  - BLOOD IMMUNOGLOBULIN G INCREASED [None]
  - JAUNDICE [None]
